FAERS Safety Report 8263847-X (Version None)
Quarter: 2012Q2

REPORT INFORMATION
  Report Type: 
  Country: None (occurrence: None)
  Receive Date: 20120405
  Receipt Date: 20120326
  Transmission Date: 20120825
  Serious: Yes (Other)
  Sender: FDA-Public Use
  Company Number: JP-MERCK-1202USA02723

PATIENT
  Age: 75 Year
  Sex: Female
  Weight: 45 kg

DRUGS (9)
  1. GLIMICRON [Concomitant]
     Indication: BLOOD GLUCOSE ABNORMAL
     Dosage: WEIGHT LOSS FROM 40 DAY MG
     Route: 048
     Dates: start: 20110929
  2. EPADEL [Concomitant]
     Route: 048
  3. METFORMIN HCL [Concomitant]
     Indication: DIABETES MELLITUS
     Dosage: INCREASE FROM 1000 DAY MG
     Route: 048
     Dates: start: 20110929
  4. JANUVIA [Suspect]
     Indication: DIABETES MELLITUS
     Route: 048
     Dates: start: 20110929
  5. JANUVIA [Suspect]
     Indication: BLOOD GLUCOSE ABNORMAL
     Route: 048
     Dates: start: 20110929
  6. MIGLITOL [Concomitant]
     Indication: DIABETES MELLITUS
     Route: 048
  7. MIGLITOL [Concomitant]
     Indication: BLOOD GLUCOSE ABNORMAL
     Route: 048
  8. METFORMIN HCL [Concomitant]
     Indication: BLOOD GLUCOSE ABNORMAL
     Dosage: INCREASE FROM 1000 DAY MG
     Route: 048
     Dates: start: 20110929
  9. GLIMICRON [Concomitant]
     Indication: DIABETES MELLITUS
     Dosage: WEIGHT LOSS FROM 40 DAY MG
     Route: 048
     Dates: start: 20110929

REACTIONS (1)
  - AUTOIMMUNE PANCREATITIS [None]
